FAERS Safety Report 21678356 (Version 1)
Quarter: 2022Q4

REPORT INFORMATION
  Report Type: Spontaneous
  Country: US (occurrence: US)
  Receive Date: 20221203
  Receipt Date: 20221203
  Transmission Date: 20230112
  Serious: Yes (Death, Hospitalization, Other)
  Sender: FDA-Public Use
  Company Number: US-AMGEN-USASP2022206430

PATIENT
  Age: 72 Year
  Sex: Male

DRUGS (1)
  1. KYPROLIS [Suspect]
     Active Substance: CARFILZOMIB
     Indication: Plasma cell myeloma
     Dosage: 120 MILLIGRAM (2 VIALS 60 MG )
     Route: 042
     Dates: start: 202003, end: 20221027

REACTIONS (2)
  - Unevaluable event [Unknown]
  - Death [Fatal]

NARRATIVE: CASE EVENT DATE: 20220101
